FAERS Safety Report 7751379-4 (Version None)
Quarter: 2011Q3

REPORT INFORMATION
  Report Type: 
  Country: None (occurrence: None)
  Receive Date: 20110914
  Receipt Date: 20110912
  Transmission Date: 20111222
  Serious: Yes (Life-Threatening, Other)
  Sender: FDA-Public Use
  Company Number: JP-B.I. PHARMACEUTICALS,INC./RIDGEFIELD-2011-BP-21965NB

PATIENT
  Age: 88 Year
  Sex: Male

DRUGS (4)
  1. ZOLPIDEM [Concomitant]
     Route: 048
  2. PRADAXA [Suspect]
     Indication: CEREBRAL INFARCTION
     Dosage: 220 MG
     Route: 048
     Dates: start: 20110714, end: 20110803
  3. ERYTHROCIN LACTOBIONATE [Concomitant]
     Dosage: 600 MG
     Route: 048
  4. CLEANAL [Concomitant]
     Dosage: 3600 MG
     Route: 048

REACTIONS (3)
  - CEREBRAL INFARCTION [None]
  - ACTIVATED PARTIAL THROMBOPLASTIN TIME PROLONGED [None]
  - CARDIAC FAILURE CONGESTIVE [None]
